FAERS Safety Report 10202096 (Version 2)
Quarter: 2014Q2

REPORT INFORMATION
  Report Type: Spontaneous
  Country: CA (occurrence: CA)
  Receive Date: 20140528
  Receipt Date: 20140606
  Transmission Date: 20141212
  Serious: Yes (Other)
  Sender: FDA-Public Use
  Company Number: CA-GLAXOSMITHKLINE-A1074431A

PATIENT
  Sex: Male

DRUGS (1)
  1. TAFINLAR [Suspect]
     Indication: METASTATIC MALIGNANT MELANOMA
     Dosage: 300MG PER DAY
     Route: 065

REACTIONS (12)
  - Visual impairment [Recovered/Resolved]
  - Vision blurred [Recovered/Resolved]
  - Eye pain [Unknown]
  - Photophobia [Unknown]
  - Visual impairment [Unknown]
  - Therapeutic response changed [Unknown]
  - Pain in extremity [Recovered/Resolved]
  - Back pain [Recovering/Resolving]
  - Vomiting [Unknown]
  - Diarrhoea [Unknown]
  - Feeling hot [Unknown]
  - Headache [Recovered/Resolved]
